FAERS Safety Report 18050985 (Version 2)
Quarter: 2023Q4

REPORT INFORMATION
  Report Type: Report from Study
  Country: AR (occurrence: AR)
  Receive Date: 20200721
  Receipt Date: 20231013
  Transmission Date: 20240110
  Serious: Yes (Disabling, Other)
  Sender: FDA-Public Use
  Company Number: AU-NOVARTISPH-NVSC2020AR202697

PATIENT
  Age: 51 Year
  Sex: Female

DRUGS (2)
  1. COSENTYX [Suspect]
     Active Substance: SECUKINUMAB
     Indication: Psoriatic arthropathy
     Dosage: 300 MG, QMO
     Route: 058
     Dates: start: 20171004, end: 201910
  2. COSENTYX [Suspect]
     Active Substance: SECUKINUMAB
     Dosage: 300 MG, QMO
     Route: 058
     Dates: start: 202001

REACTIONS (3)
  - Ear infection [Recovered/Resolved with Sequelae]
  - Tympanic membrane perforation [Recovered/Resolved with Sequelae]
  - Deafness unilateral [Unknown]

NARRATIVE: CASE EVENT DATE: 20190801
